FAERS Safety Report 11857708 (Version 1)
Quarter: 2015Q4

REPORT INFORMATION
  Report Type: Spontaneous
  Country: None (occurrence: None)
  Receive Date: 20151221
  Receipt Date: 20151221
  Transmission Date: 20160305
  Serious: No
  Sender: FDA-Public Use
  Company Number: None

PATIENT
  Age: 30 Year
  Sex: Female
  Weight: 79.38 kg

DRUGS (4)
  1. IBUPROFEN. [Concomitant]
     Active Substance: IBUPROFEN
  2. CYMBALTA [Suspect]
     Active Substance: DULOXETINE HYDROCHLORIDE
     Indication: NEURALGIA
     Dosage: 1 PILL ONCE DAILY TAKEN BY MOUTH?ONCE
     Route: 048
  3. CLONAZAPEM [Concomitant]
  4. AMBIEN [Concomitant]
     Active Substance: ZOLPIDEM TARTRATE

REACTIONS (15)
  - Agitation [None]
  - Tremor [None]
  - Urticaria [None]
  - Head discomfort [None]
  - Restlessness [None]
  - Nausea [None]
  - Vomiting [None]
  - Headache [None]
  - Sneezing [None]
  - Emotional disorder [None]
  - Photophobia [None]
  - Crying [None]
  - Muscle twitching [None]
  - Erythema [None]
  - Burning sensation [None]

NARRATIVE: CASE EVENT DATE: 20151218
